FAERS Safety Report 9381498 (Version 1)
Quarter: 2013Q3

REPORT INFORMATION
  Report Type: Spontaneous
  Country: TW (occurrence: TW)
  Receive Date: 20130703
  Receipt Date: 20130703
  Transmission Date: 20140515
  Serious: Yes (Death, Hospitalization)
  Sender: FDA-Public Use
  Company Number: TW-MPIJNJ-2013-05062

PATIENT
  Sex: 0

DRUGS (7)
  1. VELCADE [Suspect]
     Indication: PLASMA CELL MYELOMA
     Dosage: 0.7 MG/M2, CYCLIC
     Route: 058
     Dates: start: 20121016, end: 20130222
  2. DEXAMETHASONE [Suspect]
     Indication: PLASMA CELL MYELOMA
     Dosage: 20 MG, CYCLIC
     Route: 048
     Dates: start: 20121016, end: 20130223
  3. ASTOMIN                            /00426502/ [Concomitant]
     Indication: COUGH
     Dosage: UNK
     Dates: start: 20130205
  4. MUCOSOLVAN                         /00546001/ [Concomitant]
     Indication: COUGH
     Dosage: UNK
     Dates: start: 20130205
  5. LOPERAMIDE [Concomitant]
     Indication: DIARRHOEA
     Dosage: UNK
     Dates: start: 20130205, end: 20130222
  6. GASCON [Concomitant]
     Indication: PROPHYLAXIS
     Dosage: UNK
     Dates: start: 20130205, end: 20130222
  7. ACETAMINOPHEN [Concomitant]
     Indication: PROPHYLAXIS
     Dosage: UNK
     Dates: start: 20130205, end: 20130224

REACTIONS (2)
  - Death [Fatal]
  - Brain abscess [Unknown]
